FAERS Safety Report 5415739-9 (Version None)
Quarter: 2007Q3

REPORT INFORMATION
  Report Type: 
  Country: None (occurrence: None)
  Receive Date: 20070815
  Receipt Date: 20070803
  Transmission Date: 20080115
  Serious: Yes (Other)
  Sender: FDA-Public Use
  Company Number: US-PFIZER INC-2007065569

PATIENT

DRUGS (2)
  1. CHANTIX [Suspect]
  2. EFFEXOR [Interacting]

REACTIONS (2)
  - DEPRESSION [None]
  - DRUG INTERACTION [None]
